FAERS Safety Report 11972797 (Version 2)
Quarter: 2016Q1

REPORT INFORMATION
  Report Type: Spontaneous
  Country: BE (occurrence: BE)
  Receive Date: 20160128
  Receipt Date: 20160222
  Transmission Date: 20160526
  Serious: Yes (Hospitalization)
  Sender: FDA-Public Use
  Company Number: BE-JNJFOC-20160119550

PATIENT
  Age: 55 Year
  Sex: Female
  Weight: 125 kg

DRUGS (8)
  1. METHOTREXATE [Suspect]
     Active Substance: METHOTREXATE
     Indication: COLITIS
     Route: 030
  2. REMICADE [Suspect]
     Active Substance: INFLIXIMAB
     Indication: COLITIS
     Route: 042
     Dates: start: 20150701, end: 20151228
  3. REMICADE [Suspect]
     Active Substance: INFLIXIMAB
     Indication: COLITIS ULCERATIVE
     Route: 042
     Dates: start: 20150701, end: 20151228
  4. METHOTREXATE [Suspect]
     Active Substance: METHOTREXATE
     Indication: ENTEROCOLITIS HAEMORRHAGIC
     Route: 030
  5. METHOTREXATE [Suspect]
     Active Substance: METHOTREXATE
     Indication: ENTEROCOLITIS HAEMORRHAGIC
     Route: 030
     Dates: start: 20151209, end: 20160106
  6. REMICADE [Suspect]
     Active Substance: INFLIXIMAB
     Indication: COLITIS ULCERATIVE
     Route: 042
     Dates: start: 201512, end: 201601
  7. REMICADE [Suspect]
     Active Substance: INFLIXIMAB
     Indication: COLITIS
     Route: 042
     Dates: start: 201512, end: 201601
  8. METHOTREXATE [Suspect]
     Active Substance: METHOTREXATE
     Indication: COLITIS
     Route: 030
     Dates: start: 20151209, end: 20160106

REACTIONS (4)
  - Respiratory tract infection [Not Recovered/Not Resolved]
  - Interstitial lung disease [Not Recovered/Not Resolved]
  - Hospitalisation [Unknown]
  - Off label use [Unknown]

NARRATIVE: CASE EVENT DATE: 201507
